FAERS Safety Report 8825687 (Version 2)
Quarter: 2013Q2

REPORT INFORMATION
  Report Type: Spontaneous
  Country: GB (occurrence: GB)
  Receive Date: 20121004
  Receipt Date: 20130626
  Transmission Date: 20140414
  Serious: Yes (Life-Threatening, Disabling)
  Sender: FDA-Public Use
  Company Number: GB-PFIZER INC-2012239704

PATIENT
  Sex: Male
  Weight: 90 kg

DRUGS (4)
  1. DOXAZOSIN MESILATE [Suspect]
     Indication: ESSENTIAL HYPERTENSION
     Dosage: 2 MG, 2X/DAY
     Route: 048
     Dates: start: 20120415, end: 20120416
  2. AMLODIPINE BESILATE [Concomitant]
     Dosage: UNK
  3. INDAPAMIDE [Concomitant]
     Dosage: UNK
  4. OLANZAPINE [Concomitant]
     Dosage: 2.5 MG, UNK
     Dates: start: 20120126, end: 20120229

REACTIONS (14)
  - Hypersensitivity [Recovering/Resolving]
  - Withdrawal syndrome [Recovering/Resolving]
  - Arrhythmia [Recovered/Resolved]
  - Hypertension [Recovering/Resolving]
  - Heart rate increased [Unknown]
  - Diarrhoea [Recovering/Resolving]
  - Abdominal pain [Recovering/Resolving]
  - Dizziness [Recovering/Resolving]
  - Oxygen saturation decreased [Recovered/Resolved]
  - Paraesthesia [Recovering/Resolving]
  - Cough [Recovering/Resolving]
  - Eye discharge [Recovering/Resolving]
  - Lacrimal disorder [Recovering/Resolving]
  - Ear pain [Recovering/Resolving]
